FAERS Safety Report 8252185-7 (Version None)
Quarter: 2012Q2

REPORT INFORMATION
  Report Type: 
  Country: None (occurrence: None)
  Receive Date: 20120402
  Receipt Date: 20110418
  Transmission Date: 20120825
  Serious: No
  Sender: FDA-Public Use
  Company Number: US-ABBOTT-11P-163-0804455-00

PATIENT
  Age: 80 Year
  Sex: Male
  Weight: 102.27 kg

DRUGS (1)
  1. TESTOSTERONE [Suspect]
     Indication: BLOOD TESTOSTERONE DECREASED
     Dosage: DAILY DOSE: 7.5 GRAM(S), USES 6 PACKETS
     Route: 062

REACTIONS (2)
  - TREMOR [None]
  - FATIGUE [None]
